FAERS Safety Report 7810763-0 (Version None)
Quarter: 2011Q4

REPORT INFORMATION
  Report Type: 
  Country: None (occurrence: None)
  Receive Date: 20111006
  Receipt Date: 20110927
  Transmission Date: 20120403
  Serious: Yes (Other)
  Sender: FDA-Public Use
  Company Number: DSU-2011-07207

PATIENT
  Age: 71 Year
  Sex: Male
  Weight: 90.7194 kg

DRUGS (5)
  1. METFORMIN HCL [Concomitant]
  2. TWYNSTA (TELMISARTAN/AMLODIPINE) [Concomitant]
  3. TRIBENZOR [Suspect]
     Indication: HYPERTENSION
     Dosage: 20/5/12.5 MG (QD), PER ORAL
     Route: 048
     Dates: start: 20110101, end: 20110919
  4. COREG [Concomitant]
  5. ASPIRIN [Concomitant]

REACTIONS (1)
  - BLINDNESS UNILATERAL [None]
